FAERS Safety Report 9945962 (Version 3)
Quarter: 2014Q1

REPORT INFORMATION
  Report Type: Report from Study
  Country: CA (occurrence: CA)
  Receive Date: 20140303
  Receipt Date: 20140329
  Transmission Date: 20141002
  Serious: Yes (Death, Hospitalization)
  Sender: FDA-Public Use
  Company Number: CA-ABBVIE-14P-028-1207537-00

PATIENT
  Age: 85 Year
  Sex: Male

DRUGS (14)
  1. LUPRON DEPOT [Suspect]
     Indication: PROSTATE CANCER
     Route: 030
     Dates: start: 20120228
  2. KAYEXALATE [Concomitant]
     Indication: PRODUCT USED FOR UNKNOWN INDICATION
     Route: 048
  3. AMLODIPINE [Concomitant]
     Indication: HYPERTENSION
     Dates: start: 20130531
  4. METFORMIN [Concomitant]
     Indication: DIABETES MELLITUS
     Route: 048
     Dates: start: 20030731, end: 201207
  5. NITRO-DUR [Concomitant]
     Indication: HYPERTENSION
     Route: 062
     Dates: start: 20080114
  6. WARFARIN [Concomitant]
     Indication: PROPHYLAXIS
     Dosage: 7.5 TO 10 MG
     Route: 048
     Dates: start: 20130531
  7. WARFARIN [Concomitant]
     Indication: CARDIAC DISORDER
  8. VITAMIN B12 [Concomitant]
     Indication: ROUTINE HEALTH MAINTENANCE
     Route: 048
     Dates: start: 2002
  9. BISOPROLOL [Concomitant]
     Indication: HYPERTENSION
     Route: 048
     Dates: start: 20080114
  10. CANDESARTAN [Concomitant]
     Indication: HYPERTENSION
     Route: 048
     Dates: start: 20050330
  11. TYLENOL [Concomitant]
     Indication: GOUT
     Route: 048
     Dates: start: 20131205
  12. COLCHICINE [Concomitant]
     Indication: GOUT
     Route: 048
     Dates: start: 20131205
  13. TERAZOSIN [Concomitant]
     Indication: BENIGN PROSTATIC HYPERPLASIA
     Route: 048
     Dates: start: 20130531
  14. HYDRALAZINE [Concomitant]
     Indication: CARDIAC DISORDER
     Route: 048
     Dates: start: 201312

REACTIONS (7)
  - Cardiac failure congestive [Fatal]
  - Renal failure acute [Fatal]
  - Anaemia [Fatal]
  - Hyponatraemia [Fatal]
  - Atrial fibrillation [Fatal]
  - Deep vein thrombosis [Fatal]
  - Coronary artery disease [Fatal]
